FAERS Safety Report 9699292 (Version 1)
Quarter: 2013Q4

REPORT INFORMATION
  Report Type: Spontaneous
  Country: US (occurrence: US)
  Receive Date: 20131120
  Receipt Date: 20131120
  Transmission Date: 20140711
  Serious: No
  Sender: FDA-Public Use
  Company Number: US-GILEAD-2008-0015413

PATIENT
  Age: 66 Year
  Sex: Female
  Weight: 62.6 kg

DRUGS (9)
  1. LETAIRIS [Suspect]
     Indication: PULMONARY ARTERIAL HYPERTENSION
     Route: 048
     Dates: start: 20071009
  2. VENTAVIS [Concomitant]
     Indication: PULMONARY ARTERIAL HYPERTENSION
     Route: 055
  3. COUMADIN [Concomitant]
     Indication: ANTICOAGULANT THERAPY
     Route: 048
  4. GLIPIZIDE [Concomitant]
     Indication: DIABETES MELLITUS
     Route: 048
  5. TOPROL XL [Concomitant]
     Indication: ESSENTIAL HYPERTENSION
     Route: 048
  6. ZYRTEC [Concomitant]
     Indication: ASTHMA
     Route: 048
  7. COLCHICINE [Concomitant]
     Indication: GOUT
     Route: 048
  8. ALLOPURINOL [Concomitant]
     Indication: GOUT
     Route: 048
  9. FUROSEMIDE [Concomitant]
     Indication: PULMONARY ARTERIAL HYPERTENSION
     Route: 048

REACTIONS (4)
  - Pruritus [Not Recovered/Not Resolved]
  - Insomnia [Not Recovered/Not Resolved]
  - Constipation [Not Recovered/Not Resolved]
  - Headache [Not Recovered/Not Resolved]
